FAERS Safety Report 19931763 (Version 1)
Quarter: 2021Q4

REPORT INFORMATION
  Report Type: Spontaneous
  Country: ZA (occurrence: ZA)
  Receive Date: 20211007
  Receipt Date: 20211007
  Transmission Date: 20220303
  Serious: Yes (Hospitalization, Other)
  Sender: FDA-Public Use
  Company Number: ZA-LUNDBECK-DKLU3039290

PATIENT
  Sex: Female

DRUGS (1)
  1. ESCITALOPRAM OXALATE [Suspect]
     Active Substance: ESCITALOPRAM OXALATE
     Indication: Product used for unknown indication
     Dosage: 20 MG

REACTIONS (6)
  - Platelet count decreased [Unknown]
  - Haemoglobin decreased [Unknown]
  - Haemolysis [Unknown]
  - Uterine mass [Unknown]
  - Bone lesion [Unknown]
  - Central nervous system lesion [Unknown]
